FAERS Safety Report 9190237 (Version 1)
Quarter: 2013Q1

REPORT INFORMATION
  Report Type: Report from Study
  Country: US (occurrence: US)
  Receive Date: 20130326
  Receipt Date: 20130326
  Transmission Date: 20140127
  Serious: Yes (Hospitalization)
  Sender: FDA-Public Use
  Company Number: US-MYLANLABS-2013S1005948

PATIENT
  Age: 18 Year
  Sex: Male
  Weight: 53.52 kg

DRUGS (5)
  1. MERCAPTOPURINE [Suspect]
     Indication: CROHN^S DISEASE
     Dates: start: 2011
  2. HUMIRA [Suspect]
     Indication: CROHN^S DISEASE
     Route: 058
     Dates: start: 201212, end: 201212
  3. HUMIRA [Suspect]
     Indication: CROHN^S DISEASE
     Route: 058
     Dates: start: 201212, end: 201212
  4. HUMIRA [Suspect]
     Indication: CROHN^S DISEASE
     Route: 058
     Dates: start: 201301
  5. PENTASA [Concomitant]
     Indication: CROHN^S DISEASE

REACTIONS (2)
  - Pancreatitis acute [Recovered/Resolved]
  - Malaise [Recovered/Resolved]
